FAERS Safety Report 12682796 (Version 6)
Quarter: 2023Q1

REPORT INFORMATION
  Report Type: Other
  Country: US (occurrence: None)
  Receive Date: 20160825
  Receipt Date: 20230328
  Transmission Date: 20230417
  Serious: Yes (Hospitalization, Other)
  Sender: FDA-Public Use
  Company Number: US-ROCHE-1721613

PATIENT
  Age: 70 Year
  Sex: Female
  Weight: 93.070 kg

DRUGS (17)
  1. XOLAIR [Suspect]
     Active Substance: OMALIZUMAB
     Indication: Asthma
     Route: 058
     Dates: start: 2007, end: 201601
  2. BREO ELLIPTA [Suspect]
     Active Substance: FLUTICASONE FUROATE\VILANTEROL TRIFENATATE
     Indication: Asthma
     Route: 065
     Dates: start: 2014
  3. PREDNISONE [Suspect]
     Active Substance: PREDNISONE
     Indication: Product used for unknown indication
     Route: 065
     Dates: start: 2007
  4. ADVAIR HFA [Suspect]
     Active Substance: FLUTICASONE PROPIONATE\SALMETEROL XINAFOATE
     Indication: Product used for unknown indication
     Dosage: 500/50 MCG
     Route: 065
     Dates: start: 2005
  5. LORATADINE [Concomitant]
     Active Substance: LORATADINE
  6. FUROSEMIDE [Concomitant]
     Active Substance: FUROSEMIDE
  7. METOPROLOL [Concomitant]
     Active Substance: METOPROLOL
  8. SPIRONOLACTONE [Concomitant]
     Active Substance: SPIRONOLACTONE
  9. BUMEX [Concomitant]
     Active Substance: BUMETANIDE
  10. CLARITIN [Concomitant]
     Active Substance: LORATADINE
  11. DIGOXIN [Concomitant]
     Active Substance: DIGOXIN
     Dosage: 125MCG TAB
  12. ESTRACE [Concomitant]
     Active Substance: ESTRADIOL
  13. PATADAY [Concomitant]
     Active Substance: OLOPATADINE HYDROCHLORIDE
  14. PRADAXA [Concomitant]
     Active Substance: DABIGATRAN ETEXILATE MESYLATE
  15. PROTONIX [Concomitant]
     Active Substance: PANTOPRAZOLE SODIUM
  16. PROVENTIL [Concomitant]
     Active Substance: ALBUTEROL
  17. SYMBICORT [Concomitant]
     Active Substance: BUDESONIDE\FORMOTEROL FUMARATE DIHYDRATE

REACTIONS (27)
  - Pneumonia [Recovered/Resolved]
  - Dyspnoea [Unknown]
  - Oropharyngeal pain [Unknown]
  - Atrial fibrillation [Unknown]
  - Erosive oesophagitis [Not Recovered/Not Resolved]
  - Diverticulitis [Recovered/Resolved]
  - Nodule [Not Recovered/Not Resolved]
  - Dysphonia [Not Recovered/Not Resolved]
  - Swelling [Not Recovered/Not Resolved]
  - Dysphagia [Not Recovered/Not Resolved]
  - Gastrooesophageal reflux disease [Not Recovered/Not Resolved]
  - Illness [Unknown]
  - Respiratory tract infection [Recovering/Resolving]
  - Chest discomfort [Unknown]
  - Sciatic nerve neuropathy [Unknown]
  - Nerve compression [Unknown]
  - Protein total decreased [Unknown]
  - Asthenia [Unknown]
  - Fatigue [Unknown]
  - Confusional state [Unknown]
  - Swelling [Unknown]
  - Haemorrhage [Unknown]
  - Vision blurred [Unknown]
  - Amnesia [Unknown]
  - COVID-19 [Unknown]
  - Influenza [Unknown]
  - Sleep apnoea syndrome [Unknown]

NARRATIVE: CASE EVENT DATE: 20160101
